FAERS Safety Report 5903777-9 (Version None)
Quarter: 2008Q3

REPORT INFORMATION
  Report Type: 
  Country: None (occurrence: None)
  Receive Date: 20080930
  Receipt Date: 20080918
  Transmission Date: 20090109
  Serious: Yes (Hospitalization, Disabling, Other)
  Sender: FDA-Public Use
  Company Number: US-ELI_LILLY_AND_COMPANY-US200809004254

PATIENT
  Age: 52 Year
  Sex: Male
  Weight: 81.633 kg

DRUGS (12)
  1. BYETTA [Suspect]
     Indication: TYPE 2 DIABETES MELLITUS
     Dosage: 5 UG, UNKNOWN
     Route: 058
     Dates: start: 20070901, end: 20071101
  2. BYETTA [Suspect]
     Dosage: 10 UG, 2/D
     Route: 058
     Dates: start: 20071101, end: 20080101
  3. BYETTA [Suspect]
     Dosage: 10 UG, AS NEEDED
     Route: 058
     Dates: start: 20080101
  4. CYCLOBENZAPRINE HCL [Concomitant]
     Indication: MUSCLE SPASMS
     Dosage: 10 MG, UNKNOWN
  5. TRAMADOL HCL [Concomitant]
     Indication: PAIN
     Dosage: 50 MG, 2/D
  6. MULTI-VITAMIN [Concomitant]
     Dosage: 100 MG, DAILY (1/D)
  7. FOLIC ACID [Concomitant]
     Dosage: 1 MG, UNKNOWN
  8. ACETAMINOPHEN [Concomitant]
     Dosage: 1000 MG, UNKNOWN
  9. OMEPRAZOLE [Concomitant]
     Indication: GASTROOESOPHAGEAL REFLUX DISEASE
     Dosage: 20 MG, UNKNOWN
  10. LISINOPRIL [Concomitant]
     Indication: HYPERTENSION
     Dosage: 20 MG, DAILY (1/D)
  11. EZETIMIBE W/SIMVASTATIN [Concomitant]
     Indication: BLOOD CHOLESTEROL INCREASED
     Dosage: UNK, UNKNOWN
  12. VITAMIN B1 TAB [Concomitant]
     Dosage: UNK, UNKNOWN

REACTIONS (7)
  - ALCOHOL USE [None]
  - BLOOD GLUCOSE DECREASED [None]
  - BLOOD GLUCOSE INCREASED [None]
  - LOSS OF CONSCIOUSNESS [None]
  - NAUSEA [None]
  - VOMITING [None]
  - WEIGHT DECREASED [None]
